FAERS Safety Report 9686773 (Version 1)
Quarter: 2013Q4

REPORT INFORMATION
  Report Type: Spontaneous
  Country: BR (occurrence: BR)
  Receive Date: 20131113
  Receipt Date: 20131113
  Transmission Date: 20140711
  Serious: Yes (Other)
  Sender: FDA-Public Use
  Company Number: BR-PFIZER INC-2013322146

PATIENT
  Age: 75 Year
  Sex: Female
  Weight: 91 kg

DRUGS (3)
  1. FRONTAL [Suspect]
     Dosage: 1 TABLET OR CAPSULE (FORMULATION NOT SPECIFIED BY REPORTER)  2 MG, 1X/DAY
     Route: 048
     Dates: start: 20031111
  2. DIOVAN ^NOVARTIS^ [Concomitant]
     Indication: BLOOD PRESSURE ABNORMAL
     Dosage: UNK
  3. GLIFAGE [Concomitant]
     Indication: BLOOD CHOLESTEROL ABNORMAL
     Dosage: UNK

REACTIONS (1)
  - Breast cancer [Unknown]
